FAERS Safety Report 11483877 (Version 1)
Quarter: 2015Q3

REPORT INFORMATION
  Report Type: Spontaneous
  Country: US (occurrence: None)
  Receive Date: 20150904
  Receipt Date: 20150904
  Transmission Date: 20151125
  Serious: Yes (Other)
  Sender: FDA-Public Use
  Company Number: 1000070687

PATIENT
  Age: 36 Year
  Sex: Male

DRUGS (3)
  1. VALIUM (DIAZEPAM) (DIAZEPAM) [Concomitant]
  2. LEXAPRO [Suspect]
     Active Substance: ESCITALOPRAM OXALATE
     Indication: DEPRESSION
     Route: 048
     Dates: start: 2011, end: 201408
  3. ZUBSOLV (BUPRENORPHINE, NALOXONE) (BUPRENORPHINE, NALOXONE) [Concomitant]

REACTIONS (11)
  - Paraesthesia [None]
  - Erectile dysfunction [None]
  - Anxiety [None]
  - Paranoia [None]
  - Violence-related symptom [None]
  - Libido decreased [None]
  - Thinking abnormal [None]
  - Autophobia [None]
  - Feeling abnormal [None]
  - Tremor [None]
  - Suicidal ideation [None]

NARRATIVE: CASE EVENT DATE: 201408
